FAERS Safety Report 16809915 (Version 3)
Quarter: 2020Q1

REPORT INFORMATION
  Report Type: Report from Study
  Country: HK (occurrence: HK)
  Receive Date: 20190916
  Receipt Date: 20200310
  Transmission Date: 20200409
  Serious: Yes (Other)
  Sender: FDA-Public Use
  Company Number: HK-BAYER-2019-169032

PATIENT
  Age: 66 Year
  Sex: Female

DRUGS (1)
  1. LAROTRECTINIB [Suspect]
     Active Substance: LAROTRECTINIB
     Indication: METASTATIC NEOPLASM
     Dosage: 100 MG, BID
     Dates: start: 20190517, end: 20190826

REACTIONS (4)
  - Metastases to lung [Not Recovered/Not Resolved]
  - Metastases to lymph nodes [Not Recovered/Not Resolved]
  - Metastases to meninges [Not Recovered/Not Resolved]
  - Metastases to liver [Not Recovered/Not Resolved]

NARRATIVE: CASE EVENT DATE: 20190826
